FAERS Safety Report 6700137-8 (Version None)
Quarter: 2010Q2

REPORT INFORMATION
  Report Type: 
  Country: None (occurrence: None)
  Receive Date: 20100427
  Receipt Date: 20100427
  Transmission Date: 20101027
  Serious: Yes (Hospitalization)
  Sender: FDA-Public Use
  Company Number: None

PATIENT
  Sex: Male
  Weight: 87 kg

DRUGS (5)
  1. SODIUM STIBOGLUCONATE 100MG/ML ALBER DAVID LTD. [Suspect]
     Indication: ANGIOSARCOMA
     Dosage: 1200 MG/KG DAILY X 4-MONTH IV
     Route: 042
     Dates: start: 20100416, end: 20100423
  2. INTRON A [Concomitant]
  3. CISPLATIN [Concomitant]
  4. VINBLASTINE [Concomitant]
  5. DACARBAZINE [Concomitant]

REACTIONS (18)
  - ASPARTATE AMINOTRANSFERASE INCREASED [None]
  - ATRIAL FIBRILLATION [None]
  - BLOOD CALCIUM DECREASED [None]
  - BLOOD CREATININE INCREASED [None]
  - BLOOD CULTURE POSITIVE [None]
  - BLOOD POTASSIUM DECREASED [None]
  - BLOOD PRESSURE INCREASED [None]
  - BLOOD UREA ABNORMAL [None]
  - CHILLS [None]
  - COUGH [None]
  - DECREASED APPETITE [None]
  - HAEMOGLOBIN DECREASED [None]
  - HEART RATE INCREASED [None]
  - NAUSEA [None]
  - PLATELET COUNT DECREASED [None]
  - PYREXIA [None]
  - TROPONIN INCREASED [None]
  - VOMITING [None]
